FAERS Safety Report 7966284-8 (Version None)
Quarter: 2011Q4

REPORT INFORMATION
  Report Type: 
  Country: None (occurrence: None)
  Receive Date: 20111208
  Receipt Date: 20111130
  Transmission Date: 20120403
  Serious: Yes (Other)
  Sender: FDA-Public Use
  Company Number: PHEH2011US010566

PATIENT
  Sex: Male

DRUGS (1)
  1. SANDIMMUNE [Suspect]
     Dosage: 125 MG, QD
     Route: 048
     Dates: start: 20040101

REACTIONS (2)
  - SUICIDAL IDEATION [None]
  - FRUSTRATION [None]
